FAERS Safety Report 20122721 (Version 1)
Quarter: 2021Q4

REPORT INFORMATION
  Report Type: Spontaneous
  Country: US (occurrence: US)
  Receive Date: 20211128
  Receipt Date: 20211128
  Transmission Date: 20220303
  Serious: No
  Sender: FDA-Public Use
  Company Number: US-JNJFOC-20211106973

PATIENT
  Sex: Female

DRUGS (4)
  1. INVEGA [Suspect]
     Active Substance: PALIPERIDONE
     Indication: Product used for unknown indication
     Route: 048
  2. INVEGA [Suspect]
     Active Substance: PALIPERIDONE
     Route: 048
  3. LAMICTAL [Concomitant]
     Active Substance: LAMOTRIGINE
     Indication: Product used for unknown indication
     Route: 065
  4. VIIBRYD [Concomitant]
     Active Substance: VILAZODONE HYDROCHLORIDE
     Indication: Product used for unknown indication
     Route: 065

REACTIONS (7)
  - Abdominal pain upper [Unknown]
  - Somnolence [Unknown]
  - Insomnia [Unknown]
  - Fatigue [Unknown]
  - Weight increased [Unknown]
  - Thyroid function test abnormal [Unknown]
  - Ulcer [Unknown]
